FAERS Safety Report 9847309 (Version 2)
Quarter: 2014Q1

REPORT INFORMATION
  Report Type: Spontaneous
  Country: AU (occurrence: AU)
  Receive Date: 20140127
  Receipt Date: 20140208
  Transmission Date: 20141002
  Serious: Yes (Hospitalization)
  Sender: FDA-Public Use
  Company Number: AU-BAXTER-2014BAX002852

PATIENT
  Age: 83 Year
  Sex: Female

DRUGS (2)
  1. KIOVIG NORMAL IMMUNOGLOBULIN (HUMAN) 20G/200ML FOR INTRAVENOUS USE INJ [Suspect]
     Indication: POLYMYOSITIS
     Route: 042
     Dates: start: 20131202, end: 20131202
  2. KIOVIG NORMAL IMMUNOGLOBULIN (HUMAN) 20G/200ML FOR INTRAVENOUS USE INJ [Suspect]
     Indication: OFF LABEL USE

REACTIONS (2)
  - Back pain [Recovered/Resolved]
  - Hypotension [Recovered/Resolved]
